FAERS Safety Report 25283377 (Version 1)
Quarter: 2025Q2

REPORT INFORMATION
  Report Type: Spontaneous
  Country: US (occurrence: US)
  Receive Date: 20250508
  Receipt Date: 20250508
  Transmission Date: 20250717
  Serious: No
  Sender: AMNEAL
  Company Number: US-AMNEAL PHARMACEUTICALS-2024-AMRX-01292

PATIENT
  Sex: Female

DRUGS (1)
  1. DICLOFENAC SODIUM [Suspect]
     Active Substance: DICLOFENAC SODIUM
     Indication: Product used for unknown indication
     Dosage: USE 4 TIMES PER DAY EVERY DAY, DO NOT USE ON MORE THAN 2 BODY AREAS AT SAME TIME, PER DOSE: USE ENCL
     Route: 061
     Dates: end: 20240403

REACTIONS (2)
  - Burning sensation [Unknown]
  - Skin ulcer [Unknown]
